FAERS Safety Report 20417156 (Version 1)
Quarter: 2022Q1

REPORT INFORMATION
  Report Type: Spontaneous
  Country: DE (occurrence: DE)
  Receive Date: 20220202
  Receipt Date: 20220202
  Transmission Date: 20220423
  Serious: Yes (Death, Hospitalization, Other)
  Sender: FDA-Public Use
  Company Number: DE-AMGEN-DEUSP2022014410

PATIENT

DRUGS (1)
  1. FILGRASTIM [Suspect]
     Active Substance: FILGRASTIM
     Indication: Prophylaxis
     Dosage: UNK
     Route: 065

REACTIONS (9)
  - Death [Fatal]
  - Hospitalisation [Fatal]
  - Bacteraemia [Unknown]
  - Peritonitis [Unknown]
  - Haemorrhage [Unknown]
  - Micturition disorder [Unknown]
  - Gastric atony [Unknown]
  - Wound infection [Unknown]
  - Pyrexia [Unknown]
